FAERS Safety Report 22019809 (Version 1)
Quarter: 2023Q1

REPORT INFORMATION
  Report Type: Report from Study
  Country: DE (occurrence: DE)
  Receive Date: 20230222
  Receipt Date: 20230222
  Transmission Date: 20230417
  Serious: Yes (Other)
  Sender: FDA-Public Use
  Company Number: DE-002147023-NVSC2023DE020359

PATIENT
  Sex: Female
  Weight: 81 kg

DRUGS (2)
  1. LETROZOLE [Suspect]
     Active Substance: LETROZOLE
     Indication: Breast cancer metastatic
     Dosage: 2.5 MILLIGRAM, QD
     Route: 048
     Dates: start: 20200131
  2. KISQALI [Suspect]
     Active Substance: RIBOCICLIB
     Indication: Breast cancer metastatic
     Dosage: 600 MG, QD, SCHEMA 21 DAYS INTAKE, 7 DAYS PAUSE
     Route: 048
     Dates: start: 20200131, end: 20221221

REACTIONS (2)
  - Alveolitis [Not Recovered/Not Resolved]
  - Pulmonary embolism [Not Recovered/Not Resolved]

NARRATIVE: CASE EVENT DATE: 20221222
